FAERS Safety Report 5930790-8 (Version None)
Quarter: 2008Q4

REPORT INFORMATION
  Report Type: 
  Country: None (occurrence: None)
  Receive Date: 20081002
  Receipt Date: 20080509
  Transmission Date: 20090506
  Serious: Yes (Other)
  Sender: FDA-Public Use
  Company Number: 2008-0016273

PATIENT
  Age: 49 Year
  Sex: Male
  Weight: 54.4316 kg

DRUGS (9)
  1. TRUVADA [Suspect]
     Indication: HIV INFECTION
     Dates: start: 20060401, end: 20080401
  2. DEPAKOTE [Concomitant]
  3. LITHIUM CARBONATE [Concomitant]
  4. KALETRA [Concomitant]
  5. SINEMET [Concomitant]
  6. ABILIFY [Concomitant]
  7. CYMBALTA [Concomitant]
  8. ACYCLOVIR [Concomitant]
  9. TRAZODONE HCL [Concomitant]

REACTIONS (1)
  - FANCONI SYNDROME ACQUIRED [None]
